FAERS Safety Report 13259140 (Version 3)
Quarter: 2017Q2

REPORT INFORMATION
  Report Type: Spontaneous
  Country: US (occurrence: US)
  Receive Date: 20170222
  Receipt Date: 20170417
  Transmission Date: 20170830
  Serious: No
  Sender: FDA-Public Use
  Company Number: US-GLAXOSMITHKLINE-US2017024583

PATIENT
  Age: 78 Year
  Sex: Male
  Weight: 82.1 kg

DRUGS (12)
  1. AZITHROMYCIN ANHYDROUS. [Concomitant]
     Active Substance: AZITHROMYCIN ANHYDROUS
  2. PREDNISONE. [Concomitant]
     Active Substance: PREDNISONE
  3. INCRUSE ELLIPTA [Suspect]
     Active Substance: UMECLIDINIUM BROMIDE
     Indication: CHRONIC OBSTRUCTIVE PULMONARY DISEASE
     Dosage: 1 PUFF(S), QD
     Route: 055
  4. ESCITALOPRAM OXALATE TABLET [Suspect]
     Active Substance: ESCITALOPRAM OXALATE
     Indication: PRODUCT USED FOR UNKNOWN INDICATION
     Dosage: 20 MG, QD
     Route: 048
  5. CLONAZEPAM. [Concomitant]
     Active Substance: CLONAZEPAM
  6. FUROSEMIDE TABLET [Concomitant]
  7. PANTOPRAZOLE TABLET [Concomitant]
  8. ESCITALOPRAM OXALATE TABLET [Suspect]
     Active Substance: ESCITALOPRAM OXALATE
     Dosage: 10 MG, BID
     Route: 048
  9. CEFTIN [Concomitant]
     Active Substance: CEFUROXIME AXETIL
  10. VERAPAMIL CR [Concomitant]
  11. ASPIRIN LOW DOSE [Concomitant]
     Active Substance: ASPIRIN
  12. ATORVASTATIN TABLET [Concomitant]
     Active Substance: ATORVASTATIN

REACTIONS (5)
  - Drug dose omission [Not Recovered/Not Resolved]
  - Intentional product misuse [Not Recovered/Not Resolved]
  - Intentional underdose [Not Recovered/Not Resolved]
  - Breath sounds abnormal [Not Recovered/Not Resolved]
  - Rales [Not Recovered/Not Resolved]

NARRATIVE: CASE EVENT DATE: 20170220
